FAERS Safety Report 5762848-0 (Version None)
Quarter: 2008Q2

REPORT INFORMATION
  Report Type: 
  Country: None (occurrence: None)
  Receive Date: 20080609
  Receipt Date: 20080530
  Transmission Date: 20081010
  Serious: Yes (Hospitalization)
  Sender: FDA-Public Use
  Company Number: DE-ABBOTT-08P-062-0454308-00

PATIENT
  Sex: Female

DRUGS (10)
  1. HUMIRA [Suspect]
     Indication: RHEUMATOID ARTHRITIS
     Route: 058
     Dates: start: 20050501, end: 20080401
  2. INFLIXIMAB [Concomitant]
     Indication: RHEUMATOID ARTHRITIS
     Dates: start: 20040601, end: 20050601
  3. METHOTREXATE [Concomitant]
     Indication: RHEUMATOID ARTHRITIS
     Dates: start: 20050501, end: 20050701
  4. METHOTREXATE [Concomitant]
     Dates: start: 20080401
  5. LEFLUNOMIDE [Concomitant]
     Indication: RHEUMATOID ARTHRITIS
     Dates: start: 20030201, end: 20050501
  6. CYCLOSPORINE [Concomitant]
     Indication: RHEUMATOID ARTHRITIS
     Dates: start: 20040501, end: 20040701
  7. RITUXIMAB [Concomitant]
     Indication: RHEUMATOID ARTHRITIS
     Route: 042
     Dates: start: 20080401
  8. PREDNISOLONE [Concomitant]
     Indication: DRUG USE FOR UNKNOWN INDICATION
     Dates: start: 20080218
  9. IBUROFEN [Concomitant]
     Indication: DRUG USE FOR UNKNOWN INDICATION
     Dates: start: 20080218
  10. ESOMEPRAZOLE [Concomitant]
     Indication: DRUG USE FOR UNKNOWN INDICATION
     Route: 048
     Dates: start: 20080218

REACTIONS (4)
  - ABDOMINAL DISCOMFORT [None]
  - ANGINA PECTORIS [None]
  - GASTRITIS [None]
  - PARAESTHESIA [None]
